FAERS Safety Report 9724701 (Version 1)
Quarter: 2013Q4

REPORT INFORMATION
  Report Type: Spontaneous
  Country: GB (occurrence: GB)
  Receive Date: 20131202
  Receipt Date: 20131202
  Transmission Date: 20140711
  Serious: Yes (Hospitalization)
  Sender: FDA-Public Use
  Company Number: GB-ACTAVIS-2013-22137

PATIENT
  Age: 59 Year
  Sex: Female

DRUGS (10)
  1. DOCETAXEL (UNKNOWN) [Suspect]
     Indication: BREAST CANCER
     Dosage: UNK
     Route: 065
     Dates: start: 20130823, end: 20130823
  2. TRASTUZUMAB [Suspect]
     Indication: BREAST CANCER
     Dosage: 600 MG, 1/ THREE WEEKS
     Route: 058
     Dates: start: 20130823
  3. DEXAMETHASONE [Concomitant]
     Indication: PRODUCT USED FOR UNKNOWN INDICATION
     Dosage: 8 MG, BID
     Route: 065
     Dates: start: 20130822, end: 20130824
  4. METOCLOPRAMIDE [Concomitant]
     Indication: PRODUCT USED FOR UNKNOWN INDICATION
     Dosage: 20 MG, PRN. AS NECESSARY
     Route: 065
     Dates: start: 20130620
  5. PARACETAMOL [Concomitant]
     Indication: PRODUCT USED FOR UNKNOWN INDICATION
     Dosage: 1 G, UNKNOWN
     Route: 065
     Dates: start: 20130826, end: 20130829
  6. DIFFLAM [Concomitant]
     Indication: THERAPEUTIC GARGLE
     Dosage: UNK
     Route: 065
     Dates: start: 20130826
  7. NYSTATIN [Concomitant]
     Indication: PRODUCT USED FOR UNKNOWN INDICATION
     Dosage: UNK.. DOSE:100000 UNIT(S)
     Route: 065
     Dates: start: 20130826
  8. FLUCONAZOLE [Concomitant]
     Indication: PRODUCT USED FOR UNKNOWN INDICATION
     Dosage: 50 MG, UNKNOWN
     Route: 065
     Dates: start: 20130826
  9. TAZOCIN [Concomitant]
     Indication: PRODUCT USED FOR UNKNOWN INDICATION
     Dosage: 4.5 G, UNKNOWN
     Route: 065
     Dates: start: 20130826, end: 20130828
  10. AUGMENTIN                          /00756801/ [Concomitant]
     Indication: PRODUCT USED FOR UNKNOWN INDICATION
     Dosage: 1.2 G, UNKNOWN
     Route: 065
     Dates: start: 20130826, end: 20130827

REACTIONS (1)
  - Cystitis [Recovered/Resolved]
